FAERS Safety Report 22707949 (Version 2)
Quarter: 2024Q4

REPORT INFORMATION
  Report Type: Spontaneous
  Country: CA (occurrence: CA)
  Receive Date: 20230714
  Receipt Date: 20241224
  Transmission Date: 20250114
  Serious: Yes (Other)
  Sender: CIPHER
  Company Number: CA-CIPHER-2023-CA-000312

PATIENT
  Age: 22 Year
  Sex: Male

DRUGS (16)
  1. TRAMADOL HYDROCHLORIDE [Suspect]
     Active Substance: TRAMADOL HYDROCHLORIDE
     Indication: Product used for unknown indication
  2. PANTOPRAZOLE [Suspect]
     Active Substance: PANTOPRAZOLE
     Indication: Product used for unknown indication
  3. PRAMIPEXOLE [Suspect]
     Active Substance: PRAMIPEXOLE\PRAMIPEXOLE DIHYDROCHLORIDE
     Indication: Product used for unknown indication
  4. PREDNISONE [Suspect]
     Active Substance: PREDNISONE
     Indication: Product used for unknown indication
  5. PREGABALIN [Suspect]
     Active Substance: PREGABALIN
     Indication: Product used for unknown indication
  6. VITAMIN B6 [Concomitant]
     Active Substance: PYRIDOXINE HYDROCHLORIDE
     Indication: Product used for unknown indication
  7. VITAMIN C [Concomitant]
     Active Substance: ASCORBIC ACID
     Indication: Product used for unknown indication
  8. VYVANSE [Suspect]
     Active Substance: LISDEXAMFETAMINE DIMESYLATE
     Indication: Product used for unknown indication
  9. ADDERALL XR [Suspect]
     Active Substance: AMPHETAMINE ASPARTATE\AMPHETAMINE SULFATE\DEXTROAMPHETAMINE SACCHARATE\DEXTROAMPHETAMINE SULFATE
     Indication: Product used for unknown indication
  10. BACLOFEN [Concomitant]
     Active Substance: BACLOFEN
     Indication: Product used for unknown indication
  11. CLONAZEPAM [Suspect]
     Active Substance: CLONAZEPAM
     Indication: Panic attack
  12. DIAZEPAM [Suspect]
     Active Substance: DIAZEPAM
     Indication: Product used for unknown indication
  13. GRAVOL [Concomitant]
     Active Substance: DIMENHYDRINATE
     Indication: Product used for unknown indication
  14. HYDROMORPHONE [Suspect]
     Active Substance: HYDROMORPHONE
     Indication: Product used for unknown indication
  15. OCREVUS [Suspect]
     Active Substance: OCRELIZUMAB
     Indication: Relapsing-remitting multiple sclerosis
     Route: 042
  16. PANTOPRAZOLE [Concomitant]
     Active Substance: PANTOPRAZOLE
     Indication: Product used for unknown indication

REACTIONS (43)
  - Constipation [Unknown]
  - Dehydration [Unknown]
  - Depression [Unknown]
  - Diplopia [Unknown]
  - Disability [Unknown]
  - Dizziness [Unknown]
  - Drug hypersensitivity [Unknown]
  - Dry mouth [Unknown]
  - Fatigue [Unknown]
  - Feeling abnormal [Unknown]
  - Acne [Unknown]
  - Haematochezia [Unknown]
  - Hypoaesthesia [Unknown]
  - Infusion related reaction [Not Recovered/Not Resolved]
  - Intentional self-injury [Unknown]
  - Localised infection [Unknown]
  - Malaise [Unknown]
  - Muscle spasms [Unknown]
  - Muscle spasticity [Unknown]
  - Nasopharyngitis [Unknown]
  - Nausea [Unknown]
  - Aggression [Unknown]
  - Neuralgia [Unknown]
  - Pain [Unknown]
  - Pain in extremity [Unknown]
  - Panic attack [Unknown]
  - Penis injury [Unknown]
  - Post-traumatic stress disorder [Unknown]
  - Restless legs syndrome [Unknown]
  - Sedation [Unknown]
  - Seizure [Unknown]
  - Skin abrasion [Unknown]
  - Agitation [Unknown]
  - Skin laceration [Unknown]
  - Sleep disorder [Unknown]
  - Tinea pedis [Unknown]
  - Toxicity to various agents [Unknown]
  - Visual impairment [Unknown]
  - Anxiety [Unknown]
  - Attention deficit hyperactivity disorder [Unknown]
  - Back pain [Unknown]
  - Blindness [Unknown]
  - Brain fog [Unknown]
